FAERS Safety Report 9269997 (Version 2)
Quarter: 2013Q2

REPORT INFORMATION
  Report Type: Spontaneous
  Country: US (occurrence: US)
  Receive Date: 20130503
  Receipt Date: 20130529
  Transmission Date: 20140414
  Serious: Yes (Other)
  Sender: FDA-Public Use
  Company Number: US-PFIZER INC-2013137063

PATIENT
  Age: 63 Year
  Sex: Male
  Weight: 86 kg

DRUGS (4)
  1. NORVASC [Suspect]
     Indication: HYPERTENSION
     Dosage: 10 MG, UNK
  2. CARDURA [Suspect]
     Indication: HYPERTENSION
     Dosage: 4 MG, UNK
  3. ACCUPRIL [Suspect]
     Indication: HYPERTENSION
     Dosage: 20 MG, UNK
  4. VIAGRA [Suspect]
     Indication: SEXUAL DYSFUNCTION
     Dosage: 100 MG, UNK

REACTIONS (3)
  - Spinal cord injury [Unknown]
  - Road traffic accident [Unknown]
  - Nerve injury [Unknown]
